FAERS Safety Report 21332906 (Version 1)
Quarter: 2022Q3

REPORT INFORMATION
  Report Type: Spontaneous
  Country: HK (occurrence: None)
  Receive Date: 20220914
  Receipt Date: 20220914
  Transmission Date: 20221027
  Serious: Yes (Other)
  Sender: FDA-Public Use
  Company Number: HK-ADIENNEP-2022AD000597

PATIENT
  Age: 9 Year
  Sex: Male

DRUGS (9)
  1. THIOTEPA [Suspect]
     Active Substance: THIOTEPA
     Indication: Allogenic stem cell transplantation
  2. CYCLOPHOSPHAMIDE [Suspect]
     Active Substance: CYCLOPHOSPHAMIDE
     Indication: Allogenic stem cell transplantation
  3. FLUDARABINE [Suspect]
     Active Substance: FLUDARABINE PHOSPHATE
     Indication: Allogenic stem cell transplantation
  4. TREOSULFAN [Suspect]
     Active Substance: TREOSULFAN
     Indication: Allogenic stem cell transplantation
     Dosage: 14 GM/M2 (14G/M2)
  5. HYDROXYUREA [Suspect]
     Active Substance: HYDROXYUREA
     Indication: Bone marrow conditioning regimen
     Dosage: 30 MG/KG/DAY FOR 45 DAYS
     Route: 048
  6. AZATHIOPRINE [Suspect]
     Active Substance: AZATHIOPRINE
     Indication: Bone marrow conditioning regimen
     Dosage: 3 MG/KG/DAY FOR 45 DAYS
  7. ALEMTUZUMAB [Suspect]
     Active Substance: ALEMTUZUMAB
     Indication: Allogenic stem cell transplantation
  8. FLUDARABINE [Suspect]
     Active Substance: FLUDARABINE PHOSPHATE
     Indication: Allogenic stem cell transplantation
  9. CYCLOPHOSPHAMIDE [Suspect]
     Active Substance: CYCLOPHOSPHAMIDE
     Indication: Allogenic stem cell transplantation

REACTIONS (12)
  - Pyrexia [Unknown]
  - Pancytopenia [Unknown]
  - Blood lactate dehydrogenase increased [Unknown]
  - Epstein-Barr viraemia [Recovered/Resolved]
  - Rash [Recovered/Resolved]
  - Pneumonia viral [Recovered/Resolved]
  - Adenovirus infection [Recovered/Resolved]
  - Viraemia [Recovered/Resolved]
  - Enterocolitis viral [Recovered/Resolved]
  - Graft versus host disease in gastrointestinal tract [Recovered/Resolved]
  - Graft versus host disease in skin [Recovered/Resolved]
  - Hyperferritinaemia [Unknown]
